FAERS Safety Report 18240316 (Version 1)
Quarter: 2020Q3

REPORT INFORMATION
  Report Type: Spontaneous
  Country: NL (occurrence: NL)
  Receive Date: 20200908
  Receipt Date: 20200908
  Transmission Date: 20201103
  Serious: Yes (Life-Threatening, Hospitalization, Other)
  Sender: FDA-Public Use
  Company Number: NL-SUN PHARMACEUTICAL INDUSTRIES LTD-2020R1-254165

PATIENT
  Age: 35 Year
  Sex: Male
  Weight: 89 kg

DRUGS (14)
  1. LOPINAVIR/RITONAVIR [Interacting]
     Active Substance: LOPINAVIR\RITONAVIR
     Indication: COVID-19 PNEUMONIA
     Dosage: UNK, BID (400/100 MG)
     Route: 065
  2. KALETRA [Interacting]
     Active Substance: LOPINAVIR\RITONAVIR
     Indication: COVID-19
     Dosage: 2 DOSAGE FORM, QD (UNIT DOSE: 400/100 MG)
     Route: 048
  3. CEFUROXIME. [Suspect]
     Active Substance: CEFUROXIME
     Indication: COVID-19
     Dosage: ()
     Route: 042
     Dates: start: 202003, end: 202003
  4. NANOCORT [Interacting]
     Active Substance: PREDNISOLONE SODIUM PHOSPHATE
     Indication: IMMUNOSUPPRESSANT DRUG THERAPY
     Dosage: 7.5 MG, QD
     Route: 065
  5. EVEROLIMUS. [Suspect]
     Active Substance: EVEROLIMUS
     Indication: IMMUNOSUPPRESSION
     Dosage: 3 MILLIGRAM, 1DOSE/12HOUR
     Route: 065
  6. CEFUROXIME. [Suspect]
     Active Substance: CEFUROXIME
     Indication: PRODUCT USED FOR UNKNOWN INDICATION
     Dosage: UNK
     Route: 042
  7. TRAMADOL. [Concomitant]
     Active Substance: TRAMADOL
     Indication: MYALGIA
     Dosage: ()
     Route: 065
  8. EVEROLIMUS. [Suspect]
     Active Substance: EVEROLIMUS
     Dosage: 4 MILLIGRAM, 1DOSE/12HOUR
     Route: 065
  9. PREDNISOLONE. [Suspect]
     Active Substance: PREDNISOLONE
     Indication: IMMUNOSUPPRESSION
     Dosage: 7.5 MILLIGRAM, DAILY
     Route: 065
  10. EVEROLIMUS. [Suspect]
     Active Substance: EVEROLIMUS
     Dosage: 2 MILLIGRAM, 1DOSE/12HOUR
     Route: 065
  11. CEFTRIAXONE. [Concomitant]
     Active Substance: CEFTRIAXONE
     Indication: PRODUCT USED FOR UNKNOWN INDICATION
     Dosage: UNK
     Route: 065
  12. ACETAMINOPHEN. [Suspect]
     Active Substance: ACETAMINOPHEN
     Indication: PYREXIA
     Dosage: ()
     Route: 065
  13. CHLOROQUINE. [Interacting]
     Active Substance: CHLOROQUINE
     Indication: COVID-19 PNEUMONIA
     Dosage: 600 MG LOADING DOSE
     Route: 048
  14. TRAMADOL. [Concomitant]
     Active Substance: TRAMADOL
     Indication: COUGH

REACTIONS (41)
  - Lung consolidation [Recovering/Resolving]
  - Toxicity to various agents [Recovered/Resolved]
  - Productive cough [Recovering/Resolving]
  - Dyspnoea [Recovering/Resolving]
  - Headache [Recovering/Resolving]
  - Rhabdomyolysis [Recovered/Resolved]
  - Cough [Recovering/Resolving]
  - Nausea [Recovering/Resolving]
  - Pneumococcal infection [Unknown]
  - Acute pulmonary oedema [Recovered/Resolved]
  - Hypoxia [Recovering/Resolving]
  - Drug ineffective [Unknown]
  - Myalgia [Recovering/Resolving]
  - Respiratory alkalosis [Recovered/Resolved]
  - Condition aggravated [Recovered/Resolved]
  - COVID-19 pneumonia [Recovering/Resolving]
  - Off label use [Recovering/Resolving]
  - Malaise [Recovering/Resolving]
  - Tachypnoea [Recovering/Resolving]
  - Pyrexia [Recovering/Resolving]
  - Renal failure [Recovering/Resolving]
  - Interstitial lung disease [Recovered/Resolved]
  - Nasal congestion [Recovering/Resolving]
  - Hypoxia [Recovered/Resolved]
  - Renal impairment [Recovering/Resolving]
  - Metabolic acidosis [Not Recovered/Not Resolved]
  - Acute respiratory distress syndrome [Recovering/Resolving]
  - Drug interaction [Recovering/Resolving]
  - Lymphopenia [Recovering/Resolving]
  - Metabolic acidosis [Recovering/Resolving]
  - Tubulointerstitial nephritis [Not Recovered/Not Resolved]
  - Rhinorrhoea [Recovering/Resolving]
  - Rales [Recovering/Resolving]
  - Acute kidney injury [Recovering/Resolving]
  - Drug interaction [Recovered/Resolved]
  - Immunosuppressant drug level increased [Recovered/Resolved]
  - Transaminases increased [Recovered/Resolved]
  - Respiratory failure [Recovered/Resolved]
  - COVID-19 [Recovered/Resolved]
  - Vomiting [Recovering/Resolving]
  - Diarrhoea [Recovering/Resolving]

NARRATIVE: CASE EVENT DATE: 202002
